FAERS Safety Report 13989131 (Version 2)
Quarter: 2020Q3

REPORT INFORMATION
  Report Type: Spontaneous
  Country: ES (occurrence: ES)
  Receive Date: 20170920
  Receipt Date: 20200922
  Transmission Date: 20201102
  Serious: Yes (Other)
  Sender: FDA-Public Use
  Company Number: ES-ROCHE-1995267

PATIENT
  Age: 61 Year
  Sex: Female

DRUGS (2)
  1. IBIS (SPAIN) [Concomitant]
     Indication: CHRONIC SPONTANEOUS URTICARIA
     Route: 048
     Dates: start: 20140303
  2. XOLAIR [Suspect]
     Active Substance: OMALIZUMAB
     Indication: CHRONIC SPONTANEOUS URTICARIA
     Route: 058
     Dates: start: 20160411

REACTIONS (1)
  - Alopecia areata [Not Recovered/Not Resolved]

NARRATIVE: CASE EVENT DATE: 20170301
